FAERS Safety Report 5889193-7 (Version None)
Quarter: 2008Q3

REPORT INFORMATION
  Report Type: 
  Country: None (occurrence: None)
  Receive Date: 20080919
  Receipt Date: 20080916
  Transmission Date: 20090109
  Serious: Yes (Death)
  Sender: FDA-Public Use
  Company Number: US-ASTRAZENECA-2008UW19178

PATIENT
  Age: 61 Year
  Sex: Male
  Weight: 86.2 kg

DRUGS (3)
  1. TOPROL-XL [Suspect]
     Indication: HYPERTENSION
     Route: 048
  2. TOPAMAX [Suspect]
  3. LIPITOR [Concomitant]

REACTIONS (2)
  - MEDICATION ERROR [None]
  - MYOCARDIAL INFARCTION [None]
